FAERS Safety Report 5634052-8 (Version None)
Quarter: 2008Q1

REPORT INFORMATION
  Report Type: 
  Country: None (occurrence: None)
  Receive Date: 20080219
  Receipt Date: 20080205
  Transmission Date: 20080703
  Serious: Yes (Hospitalization, Other)
  Sender: FDA-Public Use
  Company Number: 2008000263

PATIENT
  Age: 71 Year
  Sex: Female

DRUGS (3)
  1. TARCEVA [Suspect]
     Indication: NON-SMALL CELL LUNG CANCER
     Dosage: (QD), ORAL
     Route: 048
     Dates: start: 20080115
  2. NORVASC [Suspect]
     Indication: HYPERTENSION
     Dosage: (2.5 MG, QD), ORAL
     Route: 048
     Dates: start: 20080115
  3. ANTIHYPERTENSIVE NOS [Concomitant]

REACTIONS (4)
  - ADVERSE EVENT [None]
  - DRUG INTERACTION [None]
  - RASH [None]
  - RESPIRATORY TRACT INFECTION [None]
